FAERS Safety Report 22229399 (Version 1)
Quarter: 2023Q2

REPORT INFORMATION
  Report Type: Spontaneous
  Country: US (occurrence: US)
  Receive Date: 20230419
  Receipt Date: 20230419
  Transmission Date: 20230722
  Serious: No
  Sender: FDA-Public Use
  Company Number: US-ALLERGAN-2224933US

PATIENT
  Sex: Male
  Weight: 70.3 kg

DRUGS (1)
  1. RESTASIS [Suspect]
     Active Substance: CYCLOSPORINE
     Indication: Product used for unknown indication
     Dosage: UNK, BID
     Route: 047

REACTIONS (2)
  - Inappropriate schedule of product administration [Unknown]
  - Foreign body sensation in eyes [Unknown]
